FAERS Safety Report 13899046 (Version 1)
Quarter: 2017Q3

REPORT INFORMATION
  Report Type: Spontaneous
  Country: US (occurrence: US)
  Receive Date: 20170823
  Receipt Date: 20170823
  Transmission Date: 20171127
  Serious: No
  Sender: FDA-Public Use
  Company Number: US-JAZZ-2017-US-007338

PATIENT
  Sex: Male

DRUGS (32)
  1. PREVIDENT [Concomitant]
     Active Substance: SODIUM FLUORIDE
  2. TRICOR                             /00090101/ [Concomitant]
     Active Substance: ADENOSINE
  3. XYREM [Suspect]
     Active Substance: SODIUM OXYBATE
     Indication: INSOMNIA
     Dosage: 2.5G, BID
     Route: 048
     Dates: start: 201002, end: 2010
  4. JUBLIA [Concomitant]
     Active Substance: EFINACONAZOLE
  5. CELEXA [Concomitant]
     Active Substance: CITALOPRAM HYDROBROMIDE
  6. DOXYCYCLINE HYCLATE. [Concomitant]
     Active Substance: DOXYCYCLINE HYCLATE
  7. NORCO [Concomitant]
     Active Substance: ACETAMINOPHEN\HYDROCODONE BITARTRATE
  8. ESCITALOPRAM [Concomitant]
     Active Substance: ESCITALOPRAM OXALATE
  9. FUROSEMIDE. [Concomitant]
     Active Substance: FUROSEMIDE
  10. TRIAZOLAM. [Concomitant]
     Active Substance: TRIAZOLAM
  11. LISINOPRIL. [Concomitant]
     Active Substance: LISINOPRIL
  12. DEXILANT [Concomitant]
     Active Substance: DEXLANSOPRAZOLE
  13. ANDROGEL [Concomitant]
     Active Substance: TESTOSTERONE
  14. MORPHINE SULF [Concomitant]
     Active Substance: MORPHINE SULFATE
  15. XYREM [Suspect]
     Active Substance: SODIUM OXYBATE
     Dosage: DOSE ADJUSTMENT
     Route: 048
     Dates: start: 2010, end: 201403
  16. CIALIS [Concomitant]
     Active Substance: TADALAFIL
  17. DEPLIN [Concomitant]
     Active Substance: LEVOMEFOLATE CALCIUM
  18. AMITIZA [Concomitant]
     Active Substance: LUBIPROSTONE
  19. LORAZEPAM. [Concomitant]
     Active Substance: LORAZEPAM
  20. MARINOL                            /00003301/ [Concomitant]
  21. BACLOFEN. [Concomitant]
     Active Substance: BACLOFEN
  22. TRAZODONE [Concomitant]
     Active Substance: TRAZODONE HYDROCHLORIDE
  23. EVZIO [Concomitant]
     Active Substance: NALOXONE HYDROCHLORIDE
  24. LIDOCAINE W/PRILOCAINE [Concomitant]
     Active Substance: LIDOCAINE\PRILOCAINE
  25. MS CONTIN [Concomitant]
     Active Substance: MORPHINE SULFATE
  26. MUPIROCIN. [Concomitant]
     Active Substance: MUPIROCIN
  27. MARIJUANA [Concomitant]
     Active Substance: CANNABIS SATIVA SUBSP. INDICA TOP
  28. SIMVASTATIN. [Concomitant]
     Active Substance: SIMVASTATIN
  29. XYREM [Suspect]
     Active Substance: SODIUM OXYBATE
     Dosage: 4.5 G, TID
     Route: 048
     Dates: start: 201403
  30. ATENOLOL. [Concomitant]
     Active Substance: ATENOLOL
  31. FLEXERIL [Concomitant]
     Active Substance: CYCLOBENZAPRINE HYDROCHLORIDE
  32. HALCION [Concomitant]
     Active Substance: TRIAZOLAM

REACTIONS (1)
  - Hypertension [Not Recovered/Not Resolved]
